FAERS Safety Report 18885190 (Version 1)
Quarter: 2021Q1

REPORT INFORMATION
  Report Type: Spontaneous
  Country: US (occurrence: US)
  Receive Date: 20210212
  Receipt Date: 20210212
  Transmission Date: 20210420
  Serious: Yes (Hospitalization)
  Sender: FDA-Public Use
  Company Number: None

PATIENT
  Age: 84 Year
  Sex: Male
  Weight: 58 kg

DRUGS (1)
  1. BACLOFEN. [Suspect]
     Active Substance: BACLOFEN
     Dates: start: 20210211, end: 20210211

REACTIONS (3)
  - Mental status changes [None]
  - Haemodialysis [None]
  - End stage renal disease [None]

NARRATIVE: CASE EVENT DATE: 20210211
